FAERS Safety Report 7681207-7 (Version None)
Quarter: 2011Q3

REPORT INFORMATION
  Report Type: 
  Country: None (occurrence: None)
  Receive Date: 20110812
  Receipt Date: 20110808
  Transmission Date: 20111222
  Serious: Yes (Hospitalization, Disabling, Other)
  Sender: FDA-Public Use
  Company Number: US-ELI_LILLY_AND_COMPANY-US201007000545

PATIENT
  Age: 37 Year
  Sex: Male
  Weight: 139.68 kg

DRUGS (6)
  1. BYETTA [Suspect]
     Dosage: UNK, UNKNOWN
     Dates: start: 20081120, end: 20090630
  2. ACTOS [Concomitant]
     Dosage: 30 MG, EACH EVENING
  3. BYETTA [Suspect]
     Dosage: 10 UG, BID
  4. GLIPIZIDE [Concomitant]
     Dosage: 10 MG, BID
  5. ALCOHOL [Concomitant]
  6. LANTUS [Concomitant]
     Dosage: 40 U, EACH EVENING

REACTIONS (4)
  - RENAL DISORDER [None]
  - HYPERLIPIDAEMIA [None]
  - PANCREATITIS ACUTE [None]
  - OFF LABEL USE [None]
